FAERS Safety Report 5960118-9 (Version None)
Quarter: 2008Q4

REPORT INFORMATION
  Report Type: 
  Country: None (occurrence: None)
  Receive Date: 20081112
  Receipt Date: 20080707
  Transmission Date: 20090506
  Serious: Yes (Other)
  Sender: FDA-Public Use
  Company Number: US-JNJFOC-20080701719

PATIENT
  Sex: Female

DRUGS (6)
  1. IBUPROFEN TABLETS [Suspect]
     Indication: ARTHRITIS
     Dosage: SEE IMAGE
     Dates: start: 19730101, end: 19760101
  2. IBUPROFEN TABLETS [Suspect]
     Indication: ARTHRITIS
     Dosage: SEE IMAGE
     Dates: start: 19760531, end: 19780101
  3. IBUPROFEN TABLETS [Suspect]
     Indication: ARTHRITIS
     Dosage: SEE IMAGE
     Dates: start: 19780615, end: 20020101
  4. IBUPROFEN TABLETS [Suspect]
     Indication: ARTHRITIS
     Dosage: SEE IMAGE
     Dates: start: 20020101, end: 20040101
  5. IBUPROFEN TABLETS [Suspect]
     Indication: ARTHRITIS
     Dosage: SEE IMAGE
     Dates: start: 20040101
  6. IBUPROFEN TABLETS [Suspect]
     Indication: ARTHRITIS
     Dates: start: 19730101

REACTIONS (6)
  - ABDOMINAL DISCOMFORT [None]
  - CEREBROVASCULAR ACCIDENT [None]
  - HYPERTENSION [None]
  - MENTAL IMPAIRMENT [None]
  - NAUSEA [None]
  - OVERDOSE [None]
